FAERS Safety Report 8439572-9 (Version None)
Quarter: 2012Q2

REPORT INFORMATION
  Report Type: 
  Country: None (occurrence: None)
  Receive Date: 20120615
  Receipt Date: 20120531
  Transmission Date: 20120825
  Serious: Yes (Hospitalization)
  Sender: FDA-Public Use
  Company Number: US-SHIRE-ALL1-2012-02749

PATIENT
  Sex: Male
  Weight: 79.365 kg

DRUGS (6)
  1. ZOLPIDEM [Concomitant]
     Indication: SLEEP DISORDER
     Dosage: 10 MG, 1X/DAY:QD
     Route: 048
     Dates: start: 19850101
  2. GABAPENTIN [Concomitant]
     Indication: CONVULSION
     Dosage: 600 MG, 3X/DAY:TID
     Route: 048
  3. CARBATROL [Suspect]
     Indication: CONVULSION
     Dosage: 600 MG, TWO 300 MG CAPSULES 2X/DAY:BID
     Route: 048
     Dates: start: 20020101, end: 20111201
  4. CARBATROL [Suspect]
     Dosage: 200 MG, 1X/DAY:QD IN MORNING
     Route: 048
     Dates: start: 20020101, end: 20111201
  5. CARBAMAZEPINE [Suspect]
     Dosage: 200 MG, 1X/DAY:QD IN MORNING
     Route: 048
     Dates: start: 20111201
  6. CARBAMAZEPINE [Suspect]
     Indication: CONVULSION
     Dosage: 600 MG, TWO 300 MG CAPSULES 2X/DAY:BID
     Route: 048
     Dates: start: 20111201

REACTIONS (4)
  - NERVOUSNESS [None]
  - BALANCE DISORDER [None]
  - HYPERTENSION [None]
  - CEREBROVASCULAR ACCIDENT [None]
